FAERS Safety Report 8215881-3 (Version None)
Quarter: 2012Q1

REPORT INFORMATION
  Report Type: 
  Country: None (occurrence: None)
  Receive Date: 20120316
  Receipt Date: 20120308
  Transmission Date: 20120608
  Serious: Yes (Hospitalization, Disabling, Other)
  Sender: FDA-Public Use
  Company Number: US-MERCK-1107USA02158

PATIENT
  Age: 43 Year
  Sex: Female
  Weight: 89 kg

DRUGS (22)
  1. FOSAMAX [Suspect]
     Indication: OSTEOPOROSIS
     Route: 048
     Dates: start: 19950101, end: 20080101
  2. VITAMIN D (UNSPECIFIED) [Concomitant]
     Route: 065
  3. ASCORBIC ACID [Concomitant]
     Route: 065
  4. PATADAY [Concomitant]
     Dosage: TO PRESENT
     Route: 047
     Dates: start: 20070101
  5. FOSAMAX [Suspect]
     Route: 048
     Dates: start: 20110829
  6. ALENDRONATE SODIUM AND CHOLECALCIFEROL [Suspect]
     Route: 065
  7. CALTRATE + D [Concomitant]
     Indication: OSTEOPOROSIS
     Dosage: TO PRESENT
     Route: 065
     Dates: start: 19940101
  8. CALTRATE + D [Concomitant]
     Indication: OSTEOPENIA
     Dosage: TO PRESENT
     Route: 065
     Dates: start: 19940101
  9. ZYRTEC [Concomitant]
     Indication: HYPERSENSITIVITY
     Route: 065
     Dates: start: 19930101, end: 20060101
  10. PATANOL [Concomitant]
     Indication: HYPERSENSITIVITY
     Route: 047
     Dates: start: 20050101, end: 20070101
  11. FOSAMAX [Suspect]
     Route: 048
     Dates: start: 20110829
  12. FOSAMAX [Suspect]
     Route: 048
     Dates: start: 20000306
  13. FOSAMAX [Suspect]
     Route: 048
     Dates: start: 20000306
  14. COUMADIN [Concomitant]
     Dosage: TO PRESENT
     Route: 065
     Dates: start: 19920101
  15. FOSAMAX [Suspect]
     Dosage: TO PRESENT
     Route: 048
     Dates: start: 20080201
  16. FOSAMAX [Suspect]
     Dosage: TO PRESENT
     Route: 048
     Dates: start: 20080201
  17. FOSAMAX [Suspect]
     Indication: OSTEOPENIA
     Route: 048
     Dates: start: 19950101, end: 20080101
  18. VITAMIN B (UNSPECIFIED) [Concomitant]
     Route: 065
  19. ASPIRIN [Concomitant]
     Indication: MIGRAINE
     Dosage: TO PRESENT
     Route: 065
     Dates: start: 19920101
  20. VITAMIN E [Concomitant]
     Route: 065
  21. CORTICOSTEROIDS (UNSPECIFIED) [Concomitant]
     Route: 065
     Dates: start: 19800101, end: 20040101
  22. CALCIUM (UNSPECIFIED) AND VITAMIN D (UNSPECIFIED) [Concomitant]
     Route: 065

REACTIONS (114)
  - LOSS OF CONSCIOUSNESS [None]
  - BLOOD URINE PRESENT [None]
  - CHEST DISCOMFORT [None]
  - CHEST PAIN [None]
  - FALL [None]
  - ESSENTIAL TREMOR [None]
  - EAR DISORDER [None]
  - TOOTH DISORDER [None]
  - SUBCLAVIAN ARTERY STENOSIS [None]
  - VULVOVAGINAL PRURITUS [None]
  - NASAL OBSTRUCTION [None]
  - ANAL PRURITUS [None]
  - BLADDER DISORDER [None]
  - MEDICAL DEVICE DISCOMFORT [None]
  - HYPOXIA [None]
  - INFLAMMATION [None]
  - SECRETION DISCHARGE [None]
  - RHINORRHOEA [None]
  - SPONDYLOLISTHESIS [None]
  - DERMATITIS CONTACT [None]
  - HERPES ZOSTER [None]
  - TREMOR [None]
  - DYSURIA [None]
  - PAIN IN JAW [None]
  - OBSESSIVE-COMPULSIVE DISORDER [None]
  - HYPERTENSION [None]
  - GASTROINTESTINAL DISORDER [None]
  - DIZZINESS [None]
  - HAND FRACTURE [None]
  - HYPOTENSION [None]
  - FEBRILE CONVULSION [None]
  - BONE DISORDER [None]
  - CONTUSION [None]
  - MYOSITIS [None]
  - AMNESIA [None]
  - IRRITABLE BOWEL SYNDROME [None]
  - SENSITISATION [None]
  - RIB FRACTURE [None]
  - SPONDYLITIS [None]
  - SINUSITIS [None]
  - SEXUAL DYSFUNCTION [None]
  - ORAL DISORDER [None]
  - HYPERLIPIDAEMIA [None]
  - GASTRITIS [None]
  - DYSPNOEA EXERTIONAL [None]
  - DRUG HYPERSENSITIVITY [None]
  - ANXIETY [None]
  - ADVERSE EVENT [None]
  - VOCAL CORD DISORDER [None]
  - SINUS DISORDER [None]
  - RESPIRATORY FAILURE [None]
  - ABDOMINAL PAIN [None]
  - ABDOMINAL WALL ABSCESS [None]
  - VISUAL IMPAIRMENT [None]
  - MUSCULOSKELETAL CHEST PAIN [None]
  - NASAL DRYNESS [None]
  - OSTEOARTHRITIS [None]
  - SACROILIITIS [None]
  - WHEEZING [None]
  - SYNCOPE [None]
  - VAGINAL INFECTION [None]
  - SNEEZING [None]
  - SLEEP APNOEA SYNDROME [None]
  - PAIN IN EXTREMITY [None]
  - HYPERSENSITIVITY [None]
  - HAEMATURIA [None]
  - HEADACHE [None]
  - FIBULA FRACTURE [None]
  - DYSPEPSIA [None]
  - MUSCLE SPASMS [None]
  - ARTERIOSCLEROSIS [None]
  - MENTAL DISORDER [None]
  - LACERATION [None]
  - MUSCULOSKELETAL PAIN [None]
  - MYALGIA [None]
  - DYSPHAGIA [None]
  - HOT FLUSH [None]
  - FOOD ALLERGY [None]
  - FLANK PAIN [None]
  - FIBROMYALGIA [None]
  - CYSTITIS [None]
  - CATARACT [None]
  - BREAST SWELLING [None]
  - EYE ALLERGY [None]
  - TINNITUS [None]
  - SCOLIOSIS [None]
  - SCIATICA [None]
  - URINARY TRACT INFECTION [None]
  - ARTHRALGIA [None]
  - OEDEMA [None]
  - HAEMORRHOIDS [None]
  - FEMUR FRACTURE [None]
  - DEVICE INTOLERANCE [None]
  - DEEP VEIN THROMBOSIS [None]
  - CONJUNCTIVITIS [None]
  - BREAST DISORDER [None]
  - THERMAL BURN [None]
  - SPUTUM INCREASED [None]
  - VULVOVAGINAL PAIN [None]
  - TRANSFUSION [None]
  - HYPOAESTHESIA [None]
  - ADJUSTMENT DISORDER WITH DEPRESSED MOOD [None]
  - ANIMAL BITE [None]
  - DEPRESSION [None]
  - ANKLE FRACTURE [None]
  - ASTHMA [None]
  - CONSTIPATION [None]
  - PNEUMONIA [None]
  - WRIST FRACTURE [None]
  - WEIGHT INCREASED [None]
  - THYMUS DISORDER [None]
  - CARPAL TUNNEL SYNDROME [None]
  - URINE FLOW DECREASED [None]
  - DYSPHONIA [None]
